FAERS Safety Report 13664249 (Version 3)
Quarter: 2017Q3

REPORT INFORMATION
  Report Type: Spontaneous
  Country: JP (occurrence: JP)
  Receive Date: 20170619
  Receipt Date: 20170718
  Transmission Date: 20171127
  Serious: Yes (Life-Threatening, Hospitalization)
  Sender: FDA-Public Use
  Company Number: JP-FERRINGPH-2017FE02768

PATIENT

DRUGS (7)
  1. MENOPUR [Suspect]
     Active Substance: FOLLITROPIN\LUTEINIZING HORMONE
     Indication: OVULATION INDUCTION
     Dosage: 150 UNK, DAILY
     Route: 030
     Dates: start: 20150608, end: 20150608
  2. CHORIONIC GONADOTROPHIN [Suspect]
     Active Substance: CHORIOGONADOTROPIN ALFA
     Indication: OVULATION INDUCTION
     Dosage: 5000 UNK, DAILY
     Route: 065
     Dates: start: 20150609, end: 20150609
  3. GONAL-F [Suspect]
     Active Substance: FOLLITROPIN
     Indication: OVULATION INDUCTION
     Dosage: 150 UNK, DAILY
     Route: 058
     Dates: start: 20150601, end: 20150607
  4. GONAL-F [Suspect]
     Active Substance: FOLLITROPIN
     Dosage: 225 UNK, UNK
     Dates: start: 20150530, end: 20150531
  5. SOPHIA A [Concomitant]
     Indication: MENSTRUAL DISORDER
     Dosage: 2 DF, DAILY
     Route: 048
     Dates: start: 20150511, end: 20150520
  6. CABASER [Concomitant]
     Active Substance: CABERGOLINE
     Indication: OVARIAN HYPERSTIMULATION SYNDROME
     Dosage: 2 DF, DAILY
     Route: 048
     Dates: start: 20150611, end: 20150617
  7. BUSERELIN ACETATE [Concomitant]
     Active Substance: BUSERELIN ACETATE
     Indication: ANOVULATORY CYCLE
     Dosage: 150 ?G, DAILY
     Route: 045
     Dates: start: 20150518, end: 20150609

REACTIONS (3)
  - Ovarian hyperstimulation syndrome [Unknown]
  - Deep vein thrombosis [Unknown]
  - Cerebral infarction [Unknown]

NARRATIVE: CASE EVENT DATE: 20150612
